FAERS Safety Report 8556685-1 (Version None)
Quarter: 2012Q3

REPORT INFORMATION
  Report Type: 
  Country: None (occurrence: None)
  Receive Date: 20120801
  Receipt Date: 20120722
  Transmission Date: 20120928
  Serious: Yes (Other)
  Sender: FDA-Public Use
  Company Number: IL-ASTELLAS-2012EU005236

PATIENT
  Age: 74 Year
  Sex: Female
  Weight: 60 kg

DRUGS (3)
  1. COLECALCIFEROL [Concomitant]
     Dosage: 200 UNK, BID
     Route: 065
  2. AMLODIPINE MALEATE [Concomitant]
     Dosage: 1 DF, UID/QD
     Route: 065
  3. VESICARE [Suspect]
     Dosage: 5 MG, UID/QD
     Route: 065

REACTIONS (1)
  - INTRAOCULAR PRESSURE INCREASED [None]
